FAERS Safety Report 7290159-3 (Version None)
Quarter: 2011Q1

REPORT INFORMATION
  Report Type: 
  Country: None (occurrence: None)
  Receive Date: 20110214
  Receipt Date: 20110131
  Transmission Date: 20110831
  Serious: Yes (Hospitalization, Other)
  Sender: FDA-Public Use
  Company Number: PHHY2010NL87297

PATIENT
  Age: 41 Year
  Sex: Male

DRUGS (14)
  1. CANNABIS [Concomitant]
     Dosage: 1 DF, UNK
  2. CLOZAPINE [Suspect]
     Indication: SCHIZOPHRENIA
     Dosage: 500 MG/DAY
  3. ANTIBIOTICS [Concomitant]
  4. METHADONE HYDROCHLORIDE [Concomitant]
     Dosage: 1 DF, UNK
  5. CLOZAPINE [Suspect]
     Dosage: 600 MG/DAY
  6. COCAINE HYDROCHLORIDE [Concomitant]
     Dosage: 1 DF, UNK
  7. LORAZEPAM [Concomitant]
     Dosage: 160 MG, 10 MG, 4 MG
  8. ANTACIDS [Concomitant]
  9. DIAZEPAM [Concomitant]
     Dosage: 1 DF, UNK
  10. HALOPERIDOL [Concomitant]
     Dosage: 1 DF, UNK
  11. PIPAMPERONE [Concomitant]
     Dosage: 1 DF, UNK
  12. IRON SUPPLEMENTS [Concomitant]
  13. CLOZAPINE [Suspect]
     Dosage: 500 MG/DAY
  14. RISPERIDONE [Concomitant]
     Dosage: 6 MG, UNK

REACTIONS (15)
  - THROMBOCYTOSIS [None]
  - HELICOBACTER INFECTION [None]
  - HAEMOGLOBIN DECREASED [None]
  - IRON DEFICIENCY ANAEMIA [None]
  - AGGRESSION [None]
  - ANTIPSYCHOTIC DRUG LEVEL INCREASED [None]
  - PLEURAL EFFUSION [None]
  - PYREXIA [None]
  - NORMOCHROMIC NORMOCYTIC ANAEMIA [None]
  - SEDATION [None]
  - PNEUMONIA [None]
  - ABDOMINAL DISCOMFORT [None]
  - C-REACTIVE PROTEIN INCREASED [None]
  - GASTRITIS [None]
  - LIVER DISORDER [None]
